FAERS Safety Report 9028426 (Version 1)
Quarter: 2013Q1

REPORT INFORMATION
  Report Type: Spontaneous
  Country: US (occurrence: US)
  Receive Date: 20130124
  Receipt Date: 20130124
  Transmission Date: 20140127
  Serious: Yes (Other)
  Sender: FDA-Public Use
  Company Number: US-PFIZER INC-2013030147

PATIENT
  Age: 60 Year
  Sex: Male
  Weight: 74.83 kg

DRUGS (3)
  1. DICLOFENAC SODIUM/MISOPROSTOL [Suspect]
     Indication: DISABILITY
     Dosage: 0.2/50 MG, 2X/DAY
     Dates: start: 20121108
  2. DICLOFENAC SODIUM/MISOPROSTOL [Suspect]
     Indication: SPONDYLITIS
  3. SIMVASTATIN [Concomitant]
     Indication: BLOOD CHOLESTEROL ABNORMAL
     Dosage: 20 MG, DAILY

REACTIONS (1)
  - Coeliac disease [Unknown]
